FAERS Safety Report 4347634-0 (Version None)
Quarter: 2004Q2

REPORT INFORMATION
  Report Type: 
  Country: None (occurrence: None)
  Receive Date: 20040422
  Receipt Date: 20040401
  Transmission Date: 20050107
  Serious: Yes (Other)
  Sender: FDA-Public Use
  Company Number: USA040463859

PATIENT
  Age: 39 Year
  Sex: Female

DRUGS (4)
  1. PROZAC [Suspect]
     Indication: ANXIETY
     Dosage: 20 MG/3 DAY
     Dates: start: 20030101
  2. PROZAC [Suspect]
     Indication: DEPRESSION
     Dosage: 20 MG/3 DAY
     Dates: start: 20030101
  3. ZYPREXA [Suspect]
     Indication: POST-TRAUMATIC STRESS DISORDER
     Dosage: 2.5 MG/1 DAY
     Dates: start: 20030101
  4. VICODIN [Concomitant]

REACTIONS (6)
  - ANXIETY [None]
  - BOREDOM [None]
  - CARTILAGE INJURY [None]
  - DEPRESSION [None]
  - DISTURBANCE IN ATTENTION [None]
  - MENTAL DISORDER [None]
